FAERS Safety Report 5242145-2 (Version None)
Quarter: 2007Q1

REPORT INFORMATION
  Report Type: 
  Country: None (occurrence: None)
  Receive Date: 20070213
  Receipt Date: 20070202
  Transmission Date: 20070707
  Serious: Yes (Other)
  Sender: FDA-Public Use
  Company Number: GXKR2007US01345

PATIENT
  Age: 73 Year
  Sex: Female

DRUGS (5)
  1. HYDROXYCHLOROQUINE (NGX) (HYDROCHLOROQUINE) UNKNOWN [Suspect]
     Indication: PAIN
     Dosage: 400 MG, QD, UNK
  2. IBUPROFEN [Concomitant]
  3. ALENDRONATE SODIUM [Concomitant]
  4. CALCIUM (CALCIUM) [Concomitant]
  5. AMLODIPINE [Concomitant]

REACTIONS (2)
  - MYELODYSPLASTIC SYNDROME [None]
  - REFRACTORY ANAEMIA [None]
